FAERS Safety Report 25209518 (Version 5)
Quarter: 2025Q3

REPORT INFORMATION
  Report Type: Report from Study
  Country: IL (occurrence: IL)
  Receive Date: 20250417
  Receipt Date: 20250901
  Transmission Date: 20251020
  Serious: Yes (Hospitalization)
  Sender: BIOGEN
  Company Number: IL-BIOGEN-2025BI01307265

PATIENT
  Sex: Female

DRUGS (2)
  1. SPINRAZA [Suspect]
     Active Substance: NUSINERSEN
     Indication: Spinal muscular atrophy
     Route: 050
     Dates: start: 2022
  2. ALPRALID (ALPRAZOLAM) [Concomitant]
     Indication: Product used for unknown indication
     Route: 050
     Dates: start: 2022

REACTIONS (3)
  - Gastrointestinal inflammation [Recovered/Resolved]
  - Musculoskeletal disorder [Unknown]
  - Back pain [Recovered/Resolved]

NARRATIVE: CASE EVENT DATE: 20250101
